FAERS Safety Report 4305041-0 (Version None)
Quarter: 2004Q1

REPORT INFORMATION
  Report Type: 
  Country: None (occurrence: None)
  Receive Date: 20040225
  Receipt Date: 20040225
  Transmission Date: 20041129
  Serious: Yes (Hospitalization)
  Sender: FDA-Public Use
  Company Number: None

PATIENT
  Age: 49 Year
  Sex: Male

DRUGS (10)
  1. VANCOMYCIN [Suspect]
     Indication: INFECTION
     Dates: start: 20030530
  2. BACTRIM [Suspect]
     Indication: INFECTION PROPHYLAXIS
  3. BACTRIM [Suspect]
     Indication: PNEUMOCYSTIS CARINII PNEUMONIA
  4. PREDNISONE [Concomitant]
  5. METRONIDAZOLE [Concomitant]
  6. METHADONE MAINTENANCE [Concomitant]
  7. ATORAQUONE [Concomitant]
  8. PHOSLO [Concomitant]
  9. BENOGEL [Concomitant]
  10. METOPROLOL TARTRATE [Concomitant]

REACTIONS (4)
  - CATHETER RELATED COMPLICATION [None]
  - HYPOTENSION [None]
  - PYREXIA [None]
  - STEVENS-JOHNSON SYNDROME [None]
